FAERS Safety Report 7157752-X (Version None)
Quarter: 2010Q4

REPORT INFORMATION
  Report Type: 
  Country: None (occurrence: None)
  Receive Date: 20101214
  Receipt Date: 20100204
  Transmission Date: 20110411
  Serious: No
  Sender: FDA-Public Use
  Company Number: US-ASTRAZENECA-2010SE05071

PATIENT
  Age: 63 Year
  Sex: Female
  Weight: 45.4 kg

DRUGS (1)
  1. CRESTOR [Suspect]
     Route: 048
     Dates: start: 20090101

REACTIONS (3)
  - ASTHENIA [None]
  - GASTRIC POLYPS [None]
  - NERVOUSNESS [None]
